FAERS Safety Report 8476870 (Version 2)
Quarter: 2014Q2

REPORT INFORMATION
  Report Type: Spontaneous
  Country: US (occurrence: US)
  Receive Date: 20120326
  Receipt Date: 20140623
  Transmission Date: 20141212
  Serious: Yes (Life-Threatening, Congenital Anomaly)
  Sender: FDA-Public Use
  Company Number: US-ELI_LILLY_AND_COMPANY-US201203004330

PATIENT
  Sex: 0

DRUGS (1)
  1. PROZAC [Suspect]
     Dosage: UNK

REACTIONS (5)
  - Meningomyelocele [Unknown]
  - Spina bifida [Unknown]
  - Neural tube defect [Unknown]
  - Hydrocephalus [Unknown]
  - Foetal exposure during pregnancy [Recovered/Resolved with Sequelae]
